FAERS Safety Report 9324490 (Version 1)
Quarter: 2013Q2

REPORT INFORMATION
  Report Type: Spontaneous
  Country: US (occurrence: None)
  Receive Date: 20130529
  Receipt Date: 20130529
  Transmission Date: 20140414
  Serious: Yes (Other)
  Sender: FDA-Public Use
  Company Number: 2013CT000039

PATIENT
  Sex: Female

DRUGS (1)
  1. KORLYM [Suspect]
     Indication: PITUITARY-DEPENDENT CUSHING^S SYNDROME
     Dates: start: 2013, end: 2013

REACTIONS (3)
  - Shock [None]
  - Malaise [None]
  - Renal impairment [None]
